FAERS Safety Report 14505910 (Version 3)
Quarter: 2018Q1

REPORT INFORMATION
  Report Type: Report from Study
  Country: AR (occurrence: AR)
  Receive Date: 20180208
  Receipt Date: 20180315
  Transmission Date: 20180509
  Serious: Yes (Life-Threatening, Hospitalization, Disabling, Other)
  Sender: FDA-Public Use
  Company Number: AR-ASTRAZENECA-2018SE15799

PATIENT
  Age: 25068 Day
  Sex: Male

DRUGS (14)
  1. ETOPOSIDE. [Suspect]
     Active Substance: ETOPOSIDE
     Indication: SMALL CELL LUNG CANCER
     Route: 065
     Dates: start: 20180122, end: 20180122
  2. ETOPOSIDE. [Suspect]
     Active Substance: ETOPOSIDE
     Indication: SMALL CELL LUNG CANCER
     Route: 065
     Dates: start: 20180214, end: 20180214
  3. MEDI4736 [Suspect]
     Active Substance: DURVALUMAB
     Indication: SMALL CELL LUNG CANCER
     Route: 042
     Dates: start: 20180306, end: 20180306
  4. CISPLATIN. [Suspect]
     Active Substance: CISPLATIN
     Indication: SMALL CELL LUNG CANCER
     Route: 065
     Dates: start: 20180122, end: 20180122
  5. CISPLATIN. [Suspect]
     Active Substance: CISPLATIN
     Indication: SMALL CELL LUNG CANCER
     Route: 065
     Dates: start: 20171227, end: 20171227
  6. MEDI4736 [Suspect]
     Active Substance: DURVALUMAB
     Indication: SMALL CELL LUNG CANCER
     Route: 042
     Dates: start: 20180122, end: 20180122
  7. ETOPOSIDE. [Suspect]
     Active Substance: ETOPOSIDE
     Indication: SMALL CELL LUNG CANCER
     Route: 065
     Dates: start: 20171205, end: 20171205
  8. ETOPOSIDE. [Suspect]
     Active Substance: ETOPOSIDE
     Indication: SMALL CELL LUNG CANCER
     Route: 065
     Dates: start: 20171227, end: 20171227
  9. CISPLATIN. [Suspect]
     Active Substance: CISPLATIN
     Indication: SMALL CELL LUNG CANCER
     Route: 065
     Dates: start: 20171205, end: 20171205
  10. MEDI4736 [Suspect]
     Active Substance: DURVALUMAB
     Indication: SMALL CELL LUNG CANCER
     Route: 042
     Dates: start: 20180214, end: 20180214
  11. MEDI4736 [Suspect]
     Active Substance: DURVALUMAB
     Indication: SMALL CELL LUNG CANCER
     Route: 042
     Dates: start: 20171227, end: 20171227
  12. STUDY PROCEDURE [Suspect]
     Active Substance: INVESTIGATIONAL PRODUCT
     Indication: SMALL CELL LUNG CANCER
     Route: 065
  13. MEDI4736 [Suspect]
     Active Substance: DURVALUMAB
     Indication: SMALL CELL LUNG CANCER
     Route: 042
     Dates: start: 20171205, end: 20171205
  14. CISPLATIN. [Suspect]
     Active Substance: CISPLATIN
     Indication: SMALL CELL LUNG CANCER
     Route: 065
     Dates: start: 20180214, end: 20180214

REACTIONS (2)
  - Febrile neutropenia [Not Recovered/Not Resolved]
  - Pneumonia [Recovered/Resolved]

NARRATIVE: CASE EVENT DATE: 20180204
